FAERS Safety Report 9818046 (Version 2)
Quarter: 2014Q3

REPORT INFORMATION
  Report Type: Spontaneous
  Country: US (occurrence: US)
  Receive Date: 20140115
  Receipt Date: 20140702
  Transmission Date: 20150326
  Serious: Yes (Death, Life-Threatening, Hospitalization, Other)
  Sender: FDA-Public Use
  Company Number: US-MERCK-1401USA005642

PATIENT
  Sex: Male
  Weight: 111.11 kg

DRUGS (1)
  1. JANUVIA [Suspect]
     Active Substance: SITAGLIPTIN PHOSPHATE
     Indication: TYPE 2 DIABETES MELLITUS
     Dosage: 100 MG, QD
     Route: 048
     Dates: start: 20070320, end: 20110529

REACTIONS (20)
  - Stent placement [Unknown]
  - Pancreatic disorder [Unknown]
  - Arthritis [Unknown]
  - Pulmonary mass [Unknown]
  - Gastritis [Unknown]
  - Ventricular hypokinesia [Unknown]
  - Rhonchi [Unknown]
  - Tenderness [Unknown]
  - Pancreatic carcinoma metastatic [Fatal]
  - Stent placement [Unknown]
  - Pancreatitis [Unknown]
  - Stent placement [Unknown]
  - Atelectasis [Unknown]
  - Asthma [Unknown]
  - Respiratory failure [Fatal]
  - Gastrooesophageal reflux disease [Unknown]
  - Lung consolidation [Unknown]
  - Obstruction [Unknown]
  - Ulcer [Unknown]
  - Tumour compression [Unknown]

NARRATIVE: CASE EVENT DATE: 20110515
